FAERS Safety Report 5500268-4 (Version None)
Quarter: 2007Q4

REPORT INFORMATION
  Report Type: 
  Country: None (occurrence: None)
  Receive Date: 20071025
  Receipt Date: 20070702
  Transmission Date: 20080405
  Serious: Yes (Death, Hospitalization)
  Sender: FDA-Public Use
  Company Number: FRPFM-E-20070073

PATIENT
  Age: 59 Year
  Sex: Male

DRUGS (10)
  1. NAVELBINE [Suspect]
     Indication: LUNG ADENOCARCINOMA STAGE IV
     Dates: start: 20050107, end: 20050107
  2. PARAPLATIN [Suspect]
     Indication: LUNG ADENOCARCINOMA STAGE IV
     Dates: start: 20050107, end: 20050107
  3. SKENAN [Concomitant]
  4. SEVREDOL [Concomitant]
  5. LASIX [Concomitant]
  6. DAFALGAN [Concomitant]
  7. CORDARONE [Concomitant]
  8. IMOVANE [Concomitant]
  9. DUPHALAC [Concomitant]
  10. DIFFU K [Concomitant]

REACTIONS (4)
  - ANISOCYTOSIS [None]
  - CARDIAC FAILURE [None]
  - FEBRILE BONE MARROW APLASIA [None]
  - RED BLOOD CELL ABNORMALITY [None]
